FAERS Safety Report 14120435 (Version 1)
Quarter: 2017Q4

REPORT INFORMATION
  Report Type: Report from Study
  Country: US (occurrence: US)
  Receive Date: 20171024
  Receipt Date: 20171024
  Transmission Date: 20180321
  Serious: Yes (Hospitalization)
  Sender: FDA-Public Use
  Company Number: US-PFIZER INC-2017450574

PATIENT
  Age: 60 Year
  Sex: Male
  Weight: 71.5 kg

DRUGS (8)
  1. TRASTUZUMAB. [Suspect]
     Active Substance: TRASTUZUMAB
     Dosage: 3.6 MG/KG, OVER 30-90 MINUTES ON DAY 1
     Route: 042
     Dates: start: 20160913, end: 20170726
  2. MELOXICAM. [Concomitant]
     Active Substance: MELOXICAM
  3. GLUCOPHAGE [Concomitant]
     Active Substance: METFORMIN HYDROCHLORIDE
  4. FENTANYL CITRATE. [Suspect]
     Active Substance: FENTANYL CITRATE
     Indication: PAIN
  5. LANTUS [Concomitant]
     Active Substance: INSULIN GLARGINE
  6. PRAVASTATIN. [Concomitant]
     Active Substance: PRAVASTATIN
  7. ASPIRIN /00002701/ [Concomitant]
     Active Substance: ASPIRIN
  8. LIRAGLUTIDE [Concomitant]
     Active Substance: LIRAGLUTIDE

REACTIONS (1)
  - Dehydration [Recovered/Resolved]

NARRATIVE: CASE EVENT DATE: 20170828
